FAERS Safety Report 8998546 (Version 1)
Quarter: 2013Q1

REPORT INFORMATION
  Report Type: Spontaneous
  Country: US (occurrence: US)
  Receive Date: 20130105
  Receipt Date: 20130105
  Transmission Date: 20140127
  Serious: No
  Sender: FDA-Public Use
  Company Number: US-JNJFOC-20121202729

PATIENT
  Age: 19 None
  Sex: Male
  Weight: 80.2 kg

DRUGS (4)
  1. INVEGA SUSTENNA [Suspect]
     Indication: BIPOLAR DISORDER
     Route: 030
     Dates: start: 201004, end: 201011
  2. INVEGA SUSTENNA [Suspect]
     Indication: BIPOLAR DISORDER
     Route: 030
     Dates: start: 20121102, end: 20121129
  3. INVEGA SUSTENNA [Suspect]
     Indication: BIPOLAR DISORDER
     Route: 030
     Dates: start: 201011, end: 201211
  4. LAMICTAL [Concomitant]
     Indication: DRUG THERAPY
     Route: 048
     Dates: start: 201004

REACTIONS (3)
  - Drug ineffective [Recovered/Resolved]
  - Dyspepsia [Recovered/Resolved]
  - Ejaculation failure [Not Recovered/Not Resolved]
